FAERS Safety Report 11935608 (Version 1)
Quarter: 2016Q1

REPORT INFORMATION
  Report Type: Spontaneous
  Country: US (occurrence: US)
  Receive Date: 20160121
  Receipt Date: 20160121
  Transmission Date: 20160526
  Serious: No
  Sender: FDA-Public Use
  Company Number: US-TEVA-587512USA

PATIENT
  Sex: Male

DRUGS (2)
  1. PROPOFOL. [Suspect]
     Active Substance: PROPOFOL
     Indication: COLONOSCOPY
     Dates: start: 20150409
  2. PROPOFOL. [Suspect]
     Active Substance: PROPOFOL
     Indication: ENDOSCOPY
     Dates: start: 20150629

REACTIONS (5)
  - Anxiety [Not Recovered/Not Resolved]
  - Insomnia [Not Recovered/Not Resolved]
  - Dyspnoea [Not Recovered/Not Resolved]
  - Dyspnoea [Not Recovered/Not Resolved]
  - Hypopnoea [Not Recovered/Not Resolved]

NARRATIVE: CASE EVENT DATE: 2015
